FAERS Safety Report 10611922 (Version 2)
Quarter: 2014Q4

REPORT INFORMATION
  Report Type: Spontaneous
  Country: US (occurrence: US)
  Receive Date: 20141126
  Receipt Date: 20141126
  Transmission Date: 20150529
  Serious: Yes (Death, Hospitalization, Other)
  Sender: FDA-Public Use
  Company Number: US-JNJFOC-20141113637

PATIENT
  Age: 87 Year
  Sex: Male
  Weight: 77 kg

DRUGS (21)
  1. IMBRUVICA [Suspect]
     Active Substance: IBRUTINIB
     Indication: CHRONIC LYMPHOCYTIC LEUKAEMIA
     Route: 048
     Dates: start: 201407, end: 20141106
  2. PRECOSE [Concomitant]
     Active Substance: ACARBOSE
     Route: 048
  3. TYLENOL [Concomitant]
     Active Substance: ACETAMINOPHEN
     Indication: PYREXIA
  4. AMARYL [Concomitant]
     Active Substance: GLIMEPIRIDE
     Route: 048
  5. VITAMIN D2 [Concomitant]
     Active Substance: ERGOCALCIFEROL
     Route: 048
  6. FERROUS SULFATE [Concomitant]
     Active Substance: FERROUS SULFATE\FERROUS SULFATE, DRIED
     Route: 048
  7. TYLENOL [Concomitant]
     Active Substance: ACETAMINOPHEN
     Indication: PAIN
  8. ECOTRIN [Concomitant]
     Active Substance: ASPIRIN
     Route: 048
  9. LIPITOR [Concomitant]
     Active Substance: ATORVASTATIN CALCIUM
     Route: 048
  10. FERROUS FUMARATE [Concomitant]
     Active Substance: FERROUS FUMARATE
     Route: 048
  11. PROCRIT [Concomitant]
     Active Substance: ERYTHROPOIETIN
     Route: 058
  12. CARAFATE [Concomitant]
     Active Substance: SUCRALFATE
     Route: 048
  13. TRADJENTA [Concomitant]
     Active Substance: LINAGLIPTIN
     Route: 048
  14. HUMALOG [Concomitant]
     Active Substance: INSULIN LISPRO
     Route: 058
  15. FOLBEE [Concomitant]
     Route: 048
  16. PRESERVISION LUTEIN EYE VITA.+MIN.SUP.SOFTG. [Concomitant]
     Route: 048
  17. COZAAR [Concomitant]
     Active Substance: LOSARTAN POTASSIUM
     Route: 048
  18. JANUVIA [Concomitant]
     Active Substance: SITAGLIPTIN PHOSPHATE
     Route: 048
  19. PEPCID [Concomitant]
     Active Substance: FAMOTIDINE
     Route: 048
  20. THORAZINE [Concomitant]
     Active Substance: CHLORPROMAZINE
     Route: 048
  21. LOPRESSOR [Concomitant]
     Active Substance: METOPROLOL TARTRATE
     Route: 048

REACTIONS (10)
  - Metabolic encephalopathy [Unknown]
  - Atrial fibrillation [Unknown]
  - Pneumonia aspiration [Unknown]
  - Acute myocardial infarction [Unknown]
  - Thrombocytopenia [Unknown]
  - Systemic inflammatory response syndrome [Unknown]
  - Haemoglobin decreased [Unknown]
  - Escherichia urinary tract infection [Fatal]
  - Bacterial sepsis [Unknown]
  - Renal failure [Unknown]

NARRATIVE: CASE EVENT DATE: 2014
